FAERS Safety Report 5487848-X (Version None)
Quarter: 2007Q3

REPORT INFORMATION
  Report Type: 
  Country: None (occurrence: None)
  Receive Date: 20070925
  Receipt Date: 20070605
  Transmission Date: 20080115
  Serious: No
  Sender: FDA-Public Use
  Company Number: 2007US001310

PATIENT
  Age: 60 Year
  Sex: Female

DRUGS (9)
  1. VESICARE [Suspect]
     Indication: INCONTINENCE
     Dosage: 5 MG, ORAL
     Route: 048
  2. PROMETRIUM [Concomitant]
  3. RANITIDINE HCL [Concomitant]
  4. RITALIN LA [Concomitant]
  5. ALLEGRA (FEXOFENADINE HYDROCHLORIDE) [Concomitant]
  6. ZYRTEC [Concomitant]
  7. METHOCARBAMAOL (METHOCARBAMOL) [Concomitant]
  8. ESTRATEST H.S. [Concomitant]
  9. TYLENOL (DEXTROMETHORPHAN HYDROBROMIDE, PSEUDOEPHEDRINE HYDROCHLORIDE, [Concomitant]

REACTIONS (2)
  - OEDEMA PERIPHERAL [None]
  - WEIGHT INCREASED [None]
